FAERS Safety Report 6595100-4 (Version None)
Quarter: 2010Q1

REPORT INFORMATION
  Report Type: 
  Country: None (occurrence: None)
  Receive Date: 20100212
  Receipt Date: 20100208
  Transmission Date: 20100710
  Serious: Yes (Life-Threatening, Hospitalization, Disabling, Other)
  Sender: FDA-Public Use
  Company Number: 2010SP006484

PATIENT
  Age: 29 Year
  Sex: Female
  Weight: 55 kg

DRUGS (4)
  1. MIRTAZAPINE [Suspect]
     Indication: DEPRESSION
     Dosage: ; QD;, 28 DF;
     Dates: start: 20050118, end: 20050118
  2. MIRTAZAPINE [Suspect]
     Indication: DEPRESSION
     Dosage: ; QD;, 28 DF;
     Dates: start: 20050119, end: 20050119
  3. PARACETAMOL (ACETAMINOPHEN (011710)) [Suspect]
     Indication: DRUG USE FOR UNKNOWN INDICATION
     Dosage: 6 DF;
  4. ZOPICLONE [Concomitant]

REACTIONS (4)
  - HEPATIC FAILURE [None]
  - JAUNDICE [None]
  - LIVER TRANSPLANT [None]
  - PRURITUS [None]
